FAERS Safety Report 10205553 (Version 1)
Quarter: 2014Q2

REPORT INFORMATION
  Report Type: Spontaneous
  Country: US (occurrence: US)
  Receive Date: 20140529
  Receipt Date: 20140529
  Transmission Date: 20141212
  Serious: No
  Sender: FDA-Public Use
  Company Number: US-009507513-1405USA014859

PATIENT
  Sex: Male

DRUGS (6)
  1. NOXAFIL [Suspect]
     Indication: COCCIDIOIDOMYCOSIS
     Dosage: 200 MG, BID
     Route: 048
  2. DIAZEPAM [Concomitant]
  3. MECLIZINE [Concomitant]
  4. DICLOFENAC [Concomitant]
  5. ACETAMINOPHEN (+) HYDROCODONE BITARTRATE [Concomitant]
  6. HYDROMORPHONE [Concomitant]

REACTIONS (2)
  - Drug screen positive [Unknown]
  - Loss of employment [Unknown]
